FAERS Safety Report 7308923-0 (Version None)
Quarter: 2011Q1

REPORT INFORMATION
  Report Type: 
  Country: None (occurrence: None)
  Receive Date: 20110223
  Receipt Date: 20110216
  Transmission Date: 20110831
  Serious: Yes (Death, Other)
  Sender: FDA-Public Use
  Company Number: JP-BRISTOL-MYERS SQUIBB COMPANY-15555030

PATIENT
  Age: 66 Year
  Sex: Male

DRUGS (2)
  1. REYATAZ [Suspect]
     Indication: HIV INFECTION
     Route: 048
     Dates: start: 20070619, end: 20080802
  2. EPZICOM [Suspect]
     Indication: HIV INFECTION
     Dosage: 6JN6-2AG8 789D 8SP8-17AP9 222D 28AP9-19MY9 22D 22MY9-07JN9 17D 1DF=1TAB/D INT,RESTART 28APR09
     Route: 048
     Dates: start: 20060606, end: 20090607

REACTIONS (2)
  - RENAL FAILURE ACUTE [None]
  - HEPATITIS C [None]
